FAERS Safety Report 8346632-X (Version None)
Quarter: 2012Q2

REPORT INFORMATION
  Report Type: 
  Country: None (occurrence: None)
  Receive Date: 20120507
  Receipt Date: 20120507
  Transmission Date: 20120825
  Serious: Yes (Hospitalization)
  Sender: FDA-Public Use
  Company Number: None

PATIENT
  Age: 27 Year
  Sex: Male
  Weight: 100.3 kg

DRUGS (2)
  1. TRAMADOL HYDROCHLORIDE [Suspect]
     Dosage: 50 MG  PRN PO
     Route: 048
     Dates: start: 20120207, end: 20120209
  2. BUPROPION HCL [Suspect]
     Dosage: 150 MG AM PO
     Route: 048
     Dates: start: 20120125, end: 20120209

REACTIONS (1)
  - CONVULSION [None]
